FAERS Safety Report 8379786-X (Version None)
Quarter: 2012Q2

REPORT INFORMATION
  Report Type: 
  Country: None (occurrence: None)
  Receive Date: 20120523
  Receipt Date: 20120515
  Transmission Date: 20120825
  Serious: Yes (Life-Threatening, Hospitalization)
  Sender: FDA-Public Use
  Company Number: FR-SANOFI-AVENTIS-2011SA033707

PATIENT
  Age: 46 Year
  Sex: Male

DRUGS (11)
  1. ATAZANAVIR SULFATE [Concomitant]
     Indication: HIV INFECTION
     Dosage: DOSE:1 UNIT(S)
     Route: 048
     Dates: end: 20120201
  2. CORTICOSTEROID NOS [Concomitant]
  3. TRIMEPRAZINE TARTRATE [Concomitant]
  4. NORVIR [Suspect]
     Indication: HIV INFECTION
     Route: 048
     Dates: end: 20120201
  5. EMTRICITABINE/TENOFOVIR DISOPROXIL FUMARATE [Concomitant]
     Indication: HIV INFECTION
     Dosage: DOSE:1 UNIT(S)
     Route: 048
     Dates: end: 20120201
  6. RISPERDAL [Suspect]
     Route: 048
     Dates: start: 20090101, end: 20110201
  7. VALIUM [Concomitant]
  8. DESMOPRESSIN ACETATE [Concomitant]
     Dosage: DOSE:01 UNIT(S)
  9. TAZOBACTAM [Concomitant]
  10. KETEK [Suspect]
     Route: 048
     Dates: start: 20110124, end: 20110201
  11. BACTRIM [Concomitant]

REACTIONS (2)
  - PANCYTOPENIA [None]
  - HAPTOGLOBIN DECREASED [None]
